FAERS Safety Report 7347243 (Version 2)
Quarter: 2022Q3

REPORT INFORMATION
  Report Type: Spontaneous
  Country: HR (occurrence: HR)
  Receive Date: 20100407
  Receipt Date: 20220825
  Transmission Date: 20221027
  Serious: Yes (Hospitalization)
  Sender: FDA-Public Use
  Company Number: PHHY2010HR20047

PATIENT
  Age: 66 Year
  Sex: Female

DRUGS (2)
  1. FLUVASTATIN SODIUM [Interacting]
     Active Substance: FLUVASTATIN SODIUM
     Indication: Dyslipidaemia
     Dosage: 80 MG, QD
     Route: 065
  2. RAPAMYCIN [Interacting]
     Active Substance: SIROLIMUS
     Indication: Product used for unknown indication
     Dosage: UNK
     Route: 065

REACTIONS (6)
  - Acute kidney injury [Recovering/Resolving]
  - Escherichia sepsis [Unknown]
  - Pyrexia [Unknown]
  - Diarrhoea [Unknown]
  - Rhabdomyolysis [Unknown]
  - Drug interaction [Unknown]
